FAERS Safety Report 6565859-0 (Version None)
Quarter: 2010Q1

REPORT INFORMATION
  Report Type: 
  Country: None (occurrence: None)
  Receive Date: 20100126
  Receipt Date: 20091222
  Transmission Date: 20100710
  Serious: Yes (Other)
  Sender: FDA-Public Use
  Company Number: 2009SP043576

PATIENT
  Sex: Female

DRUGS (1)
  1. IMPLANON [Suspect]
     Indication: DRUG USE FOR UNKNOWN INDICATION
     Dates: start: 20070613

REACTIONS (4)
  - HYPOTENSION [None]
  - MENORRHAGIA [None]
  - MENSTRUATION IRREGULAR [None]
  - SYNCOPE [None]
